FAERS Safety Report 7687176-8 (Version None)
Quarter: 2011Q3

REPORT INFORMATION
  Report Type: 
  Country: None (occurrence: None)
  Receive Date: 20110816
  Receipt Date: 20110812
  Transmission Date: 20111222
  Serious: Yes (Life-Threatening)
  Sender: FDA-Public Use
  Company Number: JP-ASTRAZENECA-2011SE48264

PATIENT
  Sex: Male

DRUGS (1)
  1. XYLOCAINE [Suspect]
     Route: 042

REACTIONS (3)
  - DRUG ADMINISTRATION ERROR [None]
  - CARDIAC ARREST [None]
  - SHOCK [None]
